FAERS Safety Report 22227357 (Version 1)
Quarter: 2023Q2

REPORT INFORMATION
  Report Type: Spontaneous
  Country: US (occurrence: US)
  Receive Date: 20230419
  Receipt Date: 20230419
  Transmission Date: 20230722
  Serious: No
  Sender: FDA-Public Use
  Company Number: US-009507513-2304USA003503

PATIENT
  Age: 48 Year
  Sex: Male

DRUGS (4)
  1. KEYTRUDA [Suspect]
     Active Substance: PEMBROLIZUMAB
     Indication: Carcinoid tumour pulmonary
     Dosage: UNK
     Dates: start: 2020, end: 2020
  2. TEMODAR [Suspect]
     Active Substance: TEMOZOLOMIDE
     Indication: Carcinoid tumour pulmonary
     Dosage: UNK
     Dates: start: 2020, end: 2020
  3. ALDESLEUKIN [Concomitant]
     Active Substance: ALDESLEUKIN
     Indication: Carcinoid tumour pulmonary
     Dosage: UNK
     Dates: start: 2020, end: 2020
  4. CAPECITABINE [Concomitant]
     Active Substance: CAPECITABINE
     Indication: Carcinoid tumour pulmonary
     Dosage: UNK
     Dates: start: 2020, end: 2020

REACTIONS (1)
  - Product use in unapproved indication [Unknown]

NARRATIVE: CASE EVENT DATE: 20200101
